FAERS Safety Report 17174820 (Version 1)
Quarter: 2019Q4

REPORT INFORMATION
  Report Type: Spontaneous
  Country: HN (occurrence: HN)
  Receive Date: 20191219
  Receipt Date: 20191219
  Transmission Date: 20200122
  Serious: Yes (Death, Other)
  Sender: FDA-Public Use
  Company Number: HN-PFIZER INC-2019546111

PATIENT
  Age: 90 Year
  Sex: Female

DRUGS (7)
  1. LINEZOLID. [Suspect]
     Active Substance: LINEZOLID
     Indication: PNEUMONIA
     Dosage: UNK
     Dates: start: 20191210
  2. DIGOXIN. [Concomitant]
     Active Substance: DIGOXIN
     Dosage: UNK
  3. INSULIN [Concomitant]
     Active Substance: INSULIN NOS
     Dosage: UNK
  4. NOREPINEPHRINE. [Concomitant]
     Active Substance: NOREPINEPHRINE
     Dosage: UNK
  5. MEROPENEM. [Suspect]
     Active Substance: MEROPENEM
     Indication: PNEUMONIA
     Dosage: UNK
     Dates: start: 20191210
  6. ECALTA [Suspect]
     Active Substance: ANIDULAFUNGIN
     Indication: PNEUMONIA
     Dosage: UNK
     Dates: start: 20191213
  7. ZAVICEFTA [Suspect]
     Active Substance: AVIBACTAM SODIUM\CEFTAZIDIME
     Indication: PNEUMONIA
     Dosage: 2.5 G, EVERY 8 HOURS
     Dates: start: 20191215

REACTIONS (1)
  - Death [Fatal]

NARRATIVE: CASE EVENT DATE: 20191216
